FAERS Safety Report 14878870 (Version 4)
Quarter: 2018Q2

REPORT INFORMATION
  Report Type: Spontaneous
  Country: US (occurrence: US)
  Receive Date: 20180511
  Receipt Date: 20180628
  Transmission Date: 20180711
  Serious: Yes (Hospitalization)
  Sender: FDA-Public Use
  Company Number: US-ELI_LILLY_AND_COMPANY-US201805004416

PATIENT
  Age: 54 Year
  Sex: Male
  Weight: 179.59 kg

DRUGS (1)
  1. TALTZ [Suspect]
     Active Substance: IXEKIZUMAB
     Indication: PSORIASIS
     Dosage: 160 MG, OTHER, LOADING DOSE
     Route: 058
     Dates: start: 20180508

REACTIONS (6)
  - Liver function test increased [Recovered/Resolved]
  - Hyperhidrosis [Recovering/Resolving]
  - Platelet count decreased [Recovered/Resolved]
  - Chills [Recovering/Resolving]
  - Inflammatory bowel disease [Recovered/Resolved]
  - White blood cell count decreased [Recovered/Resolved]

NARRATIVE: CASE EVENT DATE: 20180508
